FAERS Safety Report 21521814 (Version 1)
Quarter: 2022Q4

REPORT INFORMATION
  Report Type: Spontaneous
  Country: US (occurrence: US)
  Receive Date: 20221028
  Receipt Date: 20221028
  Transmission Date: 20230113
  Serious: Yes (Other)
  Sender: FDA-Public Use
  Company Number: US-GE HEALTHCARE-2022CSU007534

PATIENT
  Age: 53 Year
  Sex: Female
  Weight: 67 kg

DRUGS (6)
  1. OMNIPAQUE [Suspect]
     Active Substance: IOHEXOL
     Indication: Computerised tomogram abdomen
     Dosage: 100 ML, SINGLE
     Route: 042
     Dates: start: 20221013, end: 20221013
  2. OMNIPAQUE [Suspect]
     Active Substance: IOHEXOL
     Indication: Product used for unknown indication
  3. WARFARIN [Concomitant]
     Active Substance: WARFARIN
     Dosage: 8 MG, QD
     Route: 048
  4. DOXAZOSIN [Concomitant]
     Active Substance: DOXAZOSIN MESYLATE
     Dosage: 1+8 MG, DAILY
     Route: 048
  5. LOSARTAN [Concomitant]
     Active Substance: LOSARTAN
     Dosage: 50 MG, QD
     Route: 048
  6. CARVEDILOL [Concomitant]
     Active Substance: CARVEDILOL
     Dosage: 12.5 MG, BID
     Route: 048

REACTIONS (1)
  - Sialoadenitis [Recovering/Resolving]

NARRATIVE: CASE EVENT DATE: 20221014
